FAERS Safety Report 7530191-5 (Version None)
Quarter: 2011Q2

REPORT INFORMATION
  Report Type: 
  Country: None (occurrence: None)
  Receive Date: 20110607
  Receipt Date: 20110531
  Transmission Date: 20111010
  Serious: Yes (Other)
  Sender: FDA-Public Use
  Company Number: PHHY2011IT46483

PATIENT
  Sex: Female

DRUGS (1)
  1. EPIRUBICIN [Suspect]

REACTIONS (2)
  - CONSTIPATION [None]
  - NEUTROPENIA [None]
